FAERS Safety Report 6507416-8 (Version None)
Quarter: 2009Q4

REPORT INFORMATION
  Report Type: 
  Country: None (occurrence: None)
  Receive Date: 20091221
  Receipt Date: 20091119
  Transmission Date: 20100525
  Serious: No
  Sender: FDA-Public Use
  Company Number: US-BAYER-200940371NA

PATIENT
  Age: 61 Year
  Sex: Female

DRUGS (1)
  1. CLIMARA [Suspect]
     Indication: HORMONE REPLACEMENT THERAPY
     Dosage: ON STOMACH, HIP AND BUTTOCKS ( ROTATES SITES)
     Route: 062
     Dates: start: 19991101

REACTIONS (2)
  - APPLICATION SITE RASH [None]
  - RASH [None]
